FAERS Safety Report 4548513-6 (Version None)
Quarter: 2005Q1

REPORT INFORMATION
  Report Type: 
  Country: None (occurrence: None)
  Receive Date: 20050110
  Receipt Date: 20050104
  Transmission Date: 20050727
  Serious: Yes (Other)
  Sender: FDA-Public Use
  Company Number: GB-GLAXOSMITHKLINE-B0363344A

PATIENT
  Age: 89 Year
  Sex: Female

DRUGS (1)
  1. AUGMENTIN '125' [Suspect]
     Indication: PNEUMONIA
     Dosage: 1.2G UNKNOWN
     Route: 042
     Dates: start: 20041212, end: 20041212

REACTIONS (1)
  - DYSTONIA [None]
